FAERS Safety Report 19104408 (Version 1)
Quarter: 2021Q2

REPORT INFORMATION
  Report Type: Spontaneous
  Country: HR (occurrence: HR)
  Receive Date: 20210408
  Receipt Date: 20210408
  Transmission Date: 20210717
  Serious: Yes (Hospitalization)
  Sender: FDA-Public Use
  Company Number: HR-B.I. PHARMACEUTICALS,INC./RIDGEFIELD-2021-BI-094715

PATIENT
  Age: 59 Year
  Sex: Female

DRUGS (6)
  1. SYNORDIA [ATORVASTATIN CALCIUM] [Concomitant]
     Indication: PRODUCT USED FOR UNKNOWN INDICATION
     Dosage: 1 X 1
     Route: 048
  2. GLUCOPHAGE [Suspect]
     Active Substance: METFORMIN HYDROCHLORIDE
     Indication: DIABETES MELLITUS
     Dosage: 1 X 1
     Route: 048
     Dates: start: 20200508, end: 20200510
  3. SYNJARDY [Suspect]
     Active Substance: EMPAGLIFLOZIN\METFORMIN HYDROCHLORIDE
     Indication: DIABETES MELLITUS
     Dosage: 1 X 1?1 DF = 12.5 MG EMPAGLIFLOZIN + 1,000 MG METFORMIN HYDROCHLORIDE
     Route: 048
     Dates: start: 20200508, end: 20200510
  4. TRULICITY [Suspect]
     Active Substance: DULAGLUTIDE
     Indication: DIABETES MELLITUS
     Dosage: 1 X 1 TJEDNO
     Route: 058
     Dates: start: 20200508, end: 20200510
  5. ALOPURINOL BELUPO [Concomitant]
     Indication: PRODUCT USED FOR UNKNOWN INDICATION
     Dosage: 1 X 1
     Route: 048
  6. IRUZID [HYDROCHLOROTHIAZIDE;LISINOPRIL] [Concomitant]
     Indication: PRODUCT USED FOR UNKNOWN INDICATION
     Dosage: 1 X 1?1 DF = 20 MG LISINOPRILUM + 12,5 MG HYDROCHLOROTHIAZIDUM
     Route: 048

REACTIONS (6)
  - Asthenia [Unknown]
  - Drug interaction [Unknown]
  - Nervousness [Unknown]
  - Dizziness [Unknown]
  - Hypoglycaemia [Unknown]
  - Fatigue [Unknown]

NARRATIVE: CASE EVENT DATE: 20200509
